FAERS Safety Report 8237005-9 (Version None)
Quarter: 2012Q1

REPORT INFORMATION
  Report Type: 
  Country: None (occurrence: None)
  Receive Date: 20120327
  Receipt Date: 20120321
  Transmission Date: 20120608
  Serious: Yes (Hospitalization, Other)
  Sender: FDA-Public Use
  Company Number: PHHY2012DE015495

PATIENT
  Sex: Male

DRUGS (8)
  1. TASIGNA [Suspect]
     Indication: CHRONIC MYELOID LEUKAEMIA
     Dosage: 600 MG
     Route: 048
     Dates: start: 20111202
  2. OMEPRAZOLE [Concomitant]
     Dosage: 20 MG,
  3. METOPROLOL SUCCINATE [Concomitant]
     Indication: HYPERTENSION
     Dosage: 47.5 MG,
  4. ACTRAPHANE [Concomitant]
     Indication: TYPE 2 DIABETES MELLITUS
     Dosage: 24 UKN, UNK
  5. PRAVASTATIN [Concomitant]
     Indication: HYPERCHOLESTEROLAEMIA
     Dosage: 20 MG,
  6. ASPIRIN [Concomitant]
     Dosage: 100 MG,
  7. LITAREK [Concomitant]
     Indication: CHRONIC MYELOID LEUKAEMIA
     Dosage: 500 MG,
     Route: 048
     Dates: start: 20111101, end: 20111101
  8. AMLODIPINE [Concomitant]
     Dosage: 5 MG,

REACTIONS (3)
  - PNEUMONIA [None]
  - DYSPNOEA [None]
  - OEDEMA [None]
